FAERS Safety Report 8425529-0 (Version None)
Quarter: 2012Q2

REPORT INFORMATION
  Report Type: 
  Country: None (occurrence: None)
  Receive Date: 20120605
  Receipt Date: 20120529
  Transmission Date: 20120825
  Serious: Yes (Death)
  Sender: FDA-Public Use
  Company Number: 2012-002014

PATIENT
  Sex: Female

DRUGS (6)
  1. VITAMIN D (COLECALCIFEROL) [Concomitant]
  2. ZOCOR [Concomitant]
  3. BISOPROLOL FUMARATE [Concomitant]
  4. PANTOLOC (PANTOPRAZOLE SODIUM SESQUIHYDRATE) [Concomitant]
  5. CALCIUM CARBONATE [Concomitant]
  6. ACTONEL [Suspect]
     Dosage: 35 MG ONCE WEEKLY, ORAL
     Route: 048

REACTIONS (1)
  - DEATH [None]
